FAERS Safety Report 4966463-8 (Version None)
Quarter: 2006Q2

REPORT INFORMATION
  Report Type: 
  Country: None (occurrence: None)
  Receive Date: 20060403
  Receipt Date: 20060322
  Transmission Date: 20061013
  Serious: Yes (Hospitalization)
  Sender: FDA-Public Use
  Company Number: 2006-01110

PATIENT
  Age: 83 Year
  Sex: Female

DRUGS (1)
  1. FERRLECIT  (WATSON LABORATORIES) (SODIUM FERRIC GLUCOSATE) INJECION, 6 [Suspect]
     Indication: ANAEMIA
     Dosage: 250 MG X 1 (OVER 2.5-3 HRS), INTRAVENOUS
     Route: 042
     Dates: start: 20060321, end: 20060321

REACTIONS (7)
  - ATRIAL FIBRILLATION [None]
  - CONDITION AGGRAVATED [None]
  - HEART RATE INCREASED [None]
  - HYPERTENSION [None]
  - HYPOTENSION [None]
  - SYNCOPE VASOVAGAL [None]
  - VOMITING [None]
